FAERS Safety Report 10458816 (Version 2)
Quarter: 2014Q4

REPORT INFORMATION
  Report Type: Spontaneous
  Country: FR (occurrence: None)
  Receive Date: 20140915
  Receipt Date: 20141119
  Transmission Date: 20150528
  Serious: Yes (Congenital Anomaly)
  Sender: FDA-Public Use
  Company Number: HRA-CDB20140141

PATIENT

DRUGS (2)
  1. ELLAONE 30 MG COMPRIME` (ELLAONE) (ULIPRISTL ACETATE) [Suspect]
     Active Substance: ULIPRISTAL ACETATE
     Indication: EXPOSURE DURING PREGNANCY
     Route: 064
  2. NORLEVO [Suspect]
     Active Substance: LEVONORGESTREL
     Indication: EXPOSURE DURING PREGNANCY
     Route: 064

REACTIONS (2)
  - Nervous system disorder [None]
  - Maternal drugs affecting foetus [None]
